FAERS Safety Report 4454090-0 (Version None)
Quarter: 2004Q3

REPORT INFORMATION
  Report Type: 
  Country: None (occurrence: None)
  Receive Date: 20040902
  Receipt Date: 20040601
  Transmission Date: 20050211
  Serious: No
  Sender: FDA-Public Use
  Company Number: 200418141BWH

PATIENT
  Sex: Male

DRUGS (2)
  1. LEVITRA [Suspect]
     Dates: start: 20040530
  2. GRAPEFRUIT JUICE [Suspect]

REACTIONS (2)
  - BEDRIDDEN [None]
  - CHILLS [None]
